FAERS Safety Report 5302408-9 (Version None)
Quarter: 2007Q1

REPORT INFORMATION
  Report Type: 
  Country: None (occurrence: None)
  Receive Date: 20070201
  Receipt Date: 20061128
  Transmission Date: 20070707
  Serious: No
  Sender: FDA-Public Use
  Company Number: 2006PV025966

PATIENT
  Age: 60 Year
  Sex: Female
  Weight: 115.2136 kg

DRUGS (9)
  1. BYETTA [Suspect]
     Indication: DIABETES MELLITUS NON-INSULIN-DEPENDENT
     Dosage: 5 MCG; BID; SC
     Route: 058
     Dates: start: 20061107
  2. GLUCOPHAGE [Suspect]
     Indication: DRUG USE FOR UNKNOWN INDICATION
     Dosage: 500 MG; 1000 MG; QD
     Dates: start: 20061101, end: 20061101
  3. GLUCOPHAGE [Suspect]
     Indication: DRUG USE FOR UNKNOWN INDICATION
     Dosage: 500 MG; 1000 MG; QD
     Dates: end: 20061101
  4. GLUCOPHAGE [Suspect]
     Indication: DRUG USE FOR UNKNOWN INDICATION
     Dosage: 500 MG; 1000 MG; QD
     Dates: start: 20061101
  5. GLUCOTROL [Suspect]
     Indication: DRUG USE FOR UNKNOWN INDICATION
     Dosage: PO
     Route: 048
  6. METFORMIN HCL [Suspect]
     Dosage: 500 MG; 1000 MG; PO
     Route: 048
     Dates: start: 20061114, end: 20061116
  7. METFORMIN HCL [Suspect]
     Dosage: 500 MG; 1000 MG; PO
     Route: 048
     Dates: start: 20061117
  8. PRANDIN [Concomitant]
  9. ASPIRIN [Concomitant]

REACTIONS (6)
  - DIARRHOEA [None]
  - FAECES DISCOLOURED [None]
  - GASTROOESOPHAGEAL REFLUX DISEASE [None]
  - HEADACHE [None]
  - INFLUENZA LIKE ILLNESS [None]
  - INJECTION SITE HAEMORRHAGE [None]
